FAERS Safety Report 8407012-1 (Version None)
Quarter: 2012Q2

REPORT INFORMATION
  Report Type: 
  Country: None (occurrence: None)
  Receive Date: 20120604
  Receipt Date: 20120525
  Transmission Date: 20120825
  Serious: Yes (Hospitalization, Other)
  Sender: FDA-Public Use
  Company Number: US-CELGENEUS-163-20785-10112951

PATIENT
  Age: 53 Year
  Sex: Male
  Weight: 114.2 kg

DRUGS (23)
  1. DECADRON [Suspect]
     Indication: MULTIPLE MYELOMA
     Dosage: 40 MILLIGRAM
     Route: 048
     Dates: start: 20100913, end: 20101105
  2. VICODIN [Concomitant]
     Route: 065
  3. CELEXA [Concomitant]
     Dosage: 20 MILLIGRAM
     Route: 065
  4. FERROUS GLUCONATE [Concomitant]
     Dosage: 325
     Route: 065
  5. FLORASTOR [Concomitant]
     Dosage: 250 MILLIGRAM
     Route: 065
  6. THALOMID [Suspect]
     Indication: MULTIPLE MYELOMA
     Dosage: 200 MILLIGRAM
     Route: 048
     Dates: start: 20100913, end: 20101003
  7. VITAMIN B-12 [Concomitant]
     Indication: VITAMIN B12 DEFICIENCY
     Route: 065
  8. ALLOPURINOL [Concomitant]
     Dosage: 100
     Route: 065
  9. XANAX [Concomitant]
     Dosage: .5 MILLIGRAM
     Route: 065
  10. LANTUS [Concomitant]
     Dosage: 22 IU (INTERNATIONAL UNIT)
     Route: 065
  11. AREDIA [Concomitant]
     Dosage: 90 MILLIGRAM
     Route: 065
  12. LASIX [Concomitant]
     Dosage: 20 MILLIGRAM
     Route: 065
  13. COMPAZINE [Concomitant]
     Dosage: 10 MILLIGRAM
     Route: 048
     Dates: start: 20100916
  14. HUMALOG [Concomitant]
     Dosage: 6 IU (INTERNATIONAL UNIT)
     Route: 065
  15. METOPROLOL TARTRATE [Concomitant]
     Dosage: 12.5
     Route: 065
  16. VELCADE [Suspect]
     Indication: MULTIPLE MYELOMA
     Dosage: 28 MILLIGRAM
     Route: 040
     Dates: start: 20100913, end: 20101105
  17. TRANSFUSION [Concomitant]
     Route: 065
  18. ACETAMINOPHEN [Concomitant]
     Route: 065
  19. MAGNESIUM CHLORIDE [Concomitant]
     Dosage: 64 MILLIGRAM
     Route: 065
  20. PRILOSEC [Concomitant]
     Dosage: 20 MILLIGRAM
     Route: 065
  21. ARANESP [Concomitant]
     Dosage: 200 MICROGRAM
     Route: 065
  22. ZOFRAN [Concomitant]
     Indication: NAUSEA
     Route: 065
  23. KYTRIL [Concomitant]
     Dosage: 1 MILLIGRAM
     Route: 041

REACTIONS (6)
  - GASTROINTESTINAL HAEMORRHAGE [None]
  - VOMITING [None]
  - DEEP VEIN THROMBOSIS [None]
  - ASTHENIA [None]
  - HYPOTENSION [None]
  - INTERNATIONAL NORMALISED RATIO INCREASED [None]
